FAERS Safety Report 7757734-0 (Version None)
Quarter: 2011Q3

REPORT INFORMATION
  Report Type: 
  Country: None (occurrence: None)
  Receive Date: 20110916
  Receipt Date: 20110117
  Transmission Date: 20111222
  Serious: No
  Sender: FDA-Public Use
  Company Number: US-ALLERGAN-1100655US

PATIENT
  Age: 39 Year
  Sex: Female

DRUGS (3)
  1. RESTASIS [Concomitant]
  2. OPTIVE [Concomitant]
  3. ACUVAIL [Suspect]
     Indication: LASER THERAPY
     Dosage: 1 GTT, BID
     Dates: start: 20110106, end: 20110108

REACTIONS (1)
  - EYE PAIN [None]
